FAERS Safety Report 25822955 (Version 1)
Quarter: 2025Q3

REPORT INFORMATION
  Report Type: Report from Study
  Country: US (occurrence: US)
  Receive Date: 20250919
  Receipt Date: 20250919
  Transmission Date: 20251020
  Serious: Yes (Life-Threatening, Hospitalization)
  Sender: MYLAN
  Company Number: US-MYLANLABS-2025M1079019

PATIENT
  Age: 13 Year
  Sex: Female

DRUGS (2)
  1. EPINEPHRINE [Suspect]
     Active Substance: EPINEPHRINE
     Indication: Stridor
  2. EPINEPHRINE [Suspect]
     Active Substance: EPINEPHRINE
     Indication: Respiratory distress

REACTIONS (2)
  - Drug ineffective for unapproved indication [Unknown]
  - Off label use [Unknown]
